FAERS Safety Report 8141500-0 (Version None)
Quarter: 2012Q1

REPORT INFORMATION
  Report Type: 
  Country: None (occurrence: None)
  Receive Date: 20120216
  Receipt Date: 20120207
  Transmission Date: 20120608
  Serious: Yes (Hospitalization)
  Sender: FDA-Public Use
  Company Number: FR-ROCHE-1040458

PATIENT
  Sex: Female

DRUGS (11)
  1. LUCENTIS [Suspect]
     Dates: start: 20090901
  2. LUCENTIS [Suspect]
     Dates: start: 20100601
  3. LUCENTIS [Suspect]
     Dates: start: 20091101
  4. LUCENTIS [Suspect]
     Dates: start: 20110101
  5. LUCENTIS [Suspect]
     Dates: start: 20090501
  6. LUCENTIS [Suspect]
     Dates: start: 20120118
  7. LUCENTIS [Suspect]
     Indication: AGE-RELATED MACULAR DEGENERATION
     Route: 050
     Dates: start: 20090401
  8. LUCENTIS [Suspect]
     Dates: start: 20090601
  9. LUCENTIS [Suspect]
     Dates: start: 20101201
  10. LUCENTIS [Suspect]
     Dates: start: 20110401
  11. LUCENTIS [Suspect]
     Dates: start: 20091001

REACTIONS (3)
  - ANGINA PECTORIS [None]
  - ATRIAL FIBRILLATION [None]
  - CARDIOMYOPATHY [None]
